FAERS Safety Report 15125364 (Version 1)
Quarter: 2018Q3

REPORT INFORMATION
  Report Type: Report from Study
  Country: DE (occurrence: DE)
  Receive Date: 20180710
  Receipt Date: 20180710
  Transmission Date: 20181010
  Serious: Yes (Other)
  Sender: FDA-Public Use
  Company Number: DE-AUROBINDO-AUR-APL-2018-029776

PATIENT
  Age: 79 Year
  Sex: Female

DRUGS (6)
  1. DASABUVIR [Suspect]
     Active Substance: DASABUVIR
     Indication: CHRONIC HEPATITIS C
     Dosage: 250 MILLIGRAM, DAILY, DAILY DOSE: 500 MG MILLIGRAM(S) EVERY DAY
     Route: 048
  2. OMBITASVIR [Suspect]
     Active Substance: OMBITASVIR
     Indication: CHRONIC HEPATITIS C
     Dosage: 1 UNK, ONCE A DAY
     Route: 048
  3. RIBAVIRIN. [Suspect]
     Active Substance: RIBAVIRIN
     Indication: CHRONIC HEPATITIS C
     Dosage: UNK
     Route: 048
  4. DASABUVIR [Suspect]
     Active Substance: DASABUVIR
     Dosage: 500 MILLIGRAM, ONCE A DAY
     Route: 048
  5. PARITAPREVIR [Suspect]
     Active Substance: PARITAPREVIR
     Indication: CHRONIC HEPATITIS C
     Dosage: 1 UNK, ONCE A DAY
     Route: 048
  6. RITONAVIR. [Suspect]
     Active Substance: RITONAVIR
     Indication: CHRONIC HEPATITIS C
     Dosage: 1 UNK, ONCE A DAY
     Route: 048

REACTIONS (1)
  - Atrial fibrillation [Unknown]
